FAERS Safety Report 7397293-8 (Version None)
Quarter: 2011Q2

REPORT INFORMATION
  Report Type: 
  Country: None (occurrence: None)
  Receive Date: 20110406
  Receipt Date: 20110404
  Transmission Date: 20111010
  Serious: No
  Sender: FDA-Public Use
  Company Number: US-PFIZER INC-2011074358

PATIENT
  Sex: Female
  Weight: 54.422 kg

DRUGS (2)
  1. EFFEXOR [Suspect]
     Indication: DEPRESSION
  2. EFFEXOR [Suspect]
     Indication: ANXIETY
     Dosage: 100 MG, 2X/DAY
     Route: 048
     Dates: start: 20110201, end: 20110403

REACTIONS (4)
  - MALAISE [None]
  - NAUSEA [None]
  - DIARRHOEA [None]
  - DECREASED APPETITE [None]
